FAERS Safety Report 6141401-3 (Version None)
Quarter: 2009Q2

REPORT INFORMATION
  Report Type: 
  Country: None (occurrence: None)
  Receive Date: 20090402
  Receipt Date: 20090330
  Transmission Date: 20091009
  Serious: Yes (Hospitalization)
  Sender: FDA-Public Use
  Company Number: JP-BAYER-200910960BYL

PATIENT
  Age: 66 Year
  Sex: Male
  Weight: 57 kg

DRUGS (12)
  1. NEXAVAR [Suspect]
     Indication: RENAL CELL CARCINOMA STAGE IV
     Dosage: UNIT DOSE: 200 MG
     Route: 048
     Dates: start: 20080617
  2. TAKEPRON [Concomitant]
     Route: 048
     Dates: start: 20080606, end: 20080818
  3. HALCION [Concomitant]
     Route: 048
     Dates: start: 20080529
  4. OXYCONTIN [Concomitant]
     Route: 048
     Dates: start: 20080612, end: 20080616
  5. ALOSENN [Concomitant]
     Route: 048
     Dates: start: 20080612, end: 20080618
  6. DECADRON [Concomitant]
     Route: 048
     Dates: start: 20080612
  7. MYSLEE [Concomitant]
     Route: 048
     Dates: start: 20080613, end: 20080615
  8. DUROTEP [Concomitant]
     Route: 062
     Dates: start: 20080620
  9. NORVASC [Concomitant]
     Route: 048
     Dates: start: 20080624
  10. OLMETEC [Concomitant]
     Route: 048
     Dates: start: 20080624
  11. CARDENALIN [Concomitant]
     Route: 048
     Dates: start: 20080722, end: 20080915
  12. CARDENALIN [Concomitant]
     Route: 048
     Dates: start: 20080916

REACTIONS (4)
  - CONSTIPATION [None]
  - DYSPHONIA [None]
  - PALMAR-PLANTAR ERYTHRODYSAESTHESIA SYNDROME [None]
  - TUMOUR EXCISION [None]
